FAERS Safety Report 12997762 (Version 6)
Quarter: 2017Q1

REPORT INFORMATION
  Report Type: Report from Study
  Country: US (occurrence: US)
  Receive Date: 20161205
  Receipt Date: 20170103
  Transmission Date: 20170428
  Serious: Yes (Life-Threatening, Hospitalization, Other)
  Sender: FDA-Public Use
  Company Number: US-GILEAD-2016-0244364

PATIENT
  Age: 13 Year
  Sex: Female
  Weight: 28.6 kg

DRUGS (4)
  1. ADCIRCA [Concomitant]
     Active Substance: TADALAFIL
  2. AMBRISENTAN [Suspect]
     Active Substance: AMBRISENTAN
     Indication: PULMONARY ARTERIAL HYPERTENSION
     Dosage: 10 MG, QD
     Route: 048
     Dates: start: 20100226
  3. REMODULIN [Concomitant]
     Active Substance: TREPROSTINIL
     Route: 042
  4. WARFARIN [Concomitant]
     Active Substance: WARFARIN

REACTIONS (8)
  - Fluid retention [Unknown]
  - Stent placement [Recovered/Resolved]
  - Right ventricular failure [Not Recovered/Not Resolved]
  - Off label use [Not Recovered/Not Resolved]
  - Endotracheal intubation [Recovered/Resolved]
  - Pharyngeal lesion [Recovered/Resolved]
  - Pulmonary hypertension [Recovered/Resolved]
  - Pericardial effusion [Recovered/Resolved]

NARRATIVE: CASE EVENT DATE: 20100226
